FAERS Safety Report 8493334-5 (Version None)
Quarter: 2012Q3

REPORT INFORMATION
  Report Type: 
  Country: None (occurrence: None)
  Receive Date: 20120706
  Receipt Date: 20120626
  Transmission Date: 20120928
  Serious: Yes (Hospitalization)
  Sender: FDA-Public Use
  Company Number: JP-JNJFOC-20120413816

PATIENT
  Age: 88 Year
  Sex: Female
  Weight: 38 kg

DRUGS (6)
  1. CYANOCOBALAMIN [Concomitant]
     Route: 048
     Dates: end: 20120424
  2. VITAMIN PREPARATION COMPOUND [Concomitant]
     Route: 048
     Dates: end: 20120424
  3. ISOSORBIDE DINITRATE [Concomitant]
     Route: 062
     Dates: end: 20120424
  4. HALOPERIDOL DECANOATE [Concomitant]
     Indication: DELIRIUM
     Route: 030
     Dates: start: 20120214, end: 20120313
  5. GALANTAMINE HYDROBROMIDE [Suspect]
     Indication: DEMENTIA ALZHEIMER'S TYPE
     Route: 048
     Dates: start: 20110920, end: 20120424
  6. GALANTAMINE HYDROBROMIDE [Suspect]
     Route: 048
     Dates: start: 20110426, end: 20110919

REACTIONS (3)
  - GASTROINTESTINAL HAEMORRHAGE [None]
  - ANAEMIA [None]
  - GASTRIC ULCER [None]
